FAERS Safety Report 10154819 (Version 1)
Quarter: 2014Q2

REPORT INFORMATION
  Report Type: Spontaneous
  Country: FR (occurrence: FR)
  Receive Date: 20140506
  Receipt Date: 20140506
  Transmission Date: 20141212
  Serious: Yes (Hospitalization, Disabling)
  Sender: FDA-Public Use
  Company Number: FR-SA-2014SA053855

PATIENT
  Age: 59 Year
  Sex: Female

DRUGS (14)
  1. LOVENOX [Suspect]
     Indication: PRODUCT USED FOR UNKNOWN INDICATION
     Route: 058
     Dates: start: 20131101
  2. LOVENOX [Suspect]
     Indication: PRODUCT USED FOR UNKNOWN INDICATION
     Route: 058
     Dates: start: 20140227
  3. LOVENOX [Suspect]
     Indication: PRODUCT USED FOR UNKNOWN INDICATION
     Route: 058
     Dates: start: 20140311, end: 20140312
  4. LOVENOX [Suspect]
     Indication: PRODUCT USED FOR UNKNOWN INDICATION
     Route: 058
     Dates: start: 20140313, end: 20140315
  5. LOVENOX [Suspect]
     Indication: PRODUCT USED FOR UNKNOWN INDICATION
     Route: 058
     Dates: start: 20140316
  6. KARDEGIC [Suspect]
     Indication: PRODUCT USED FOR UNKNOWN INDICATION
     Dosage: FREQUENCY - 1 TIME DAILY AT LUNCH?STRENGTH 75 MG
     Route: 048
     Dates: start: 201309
  7. VENTOLINE [Concomitant]
     Dosage: DOSE:1 PUFF(S)
  8. VERSATIS [Concomitant]
  9. DAFALGAN [Concomitant]
     Dosage: STRENGTH: 500 MG
  10. EUPANTOL [Concomitant]
     Dosage: STRENGTH: 40 MG; IN EVENING
  11. TARDYFERON [Concomitant]
     Dosage: MORNING AND EVENING
  12. TOPALGIC [Concomitant]
     Dosage: LUNCH AND EVENING; STRENGTH: 50 MG
  13. TOPALGIC [Concomitant]
     Dosage: STRENGTH: 150 MG; MORNING AND EVENING
  14. FORADIL [Concomitant]
     Dosage: MORNING AND EVENING

REACTIONS (2)
  - Haematoma [Not Recovered/Not Resolved]
  - Haematoma infection [Not Recovered/Not Resolved]
